FAERS Safety Report 16007416 (Version 1)
Quarter: 2019Q1

REPORT INFORMATION
  Report Type: Spontaneous
  Country: US (occurrence: US)
  Receive Date: 20190226
  Receipt Date: 20190226
  Transmission Date: 20190418
  Serious: No
  Sender: FDA-Public Use
  Company Number: US-MYLANLABS-2019M1014685

PATIENT

DRUGS (1)
  1. SPIRONOLACTONE TABLETS, USP [Suspect]
     Active Substance: SPIRONOLACTONE
     Indication: GENDER DYSPHORIA
     Dosage: 100 MILLIGRAM, BID
     Route: 048

REACTIONS (4)
  - Off label use [Unknown]
  - Product use complaint [Unknown]
  - Product taste abnormal [Unknown]
  - Product odour abnormal [Unknown]
